FAERS Safety Report 6383565-2 (Version None)
Quarter: 2009Q3

REPORT INFORMATION
  Report Type: 
  Country: None (occurrence: None)
  Receive Date: 20090928
  Receipt Date: 20090918
  Transmission Date: 20100115
  Serious: Yes (Other)
  Sender: FDA-Public Use
  Company Number: AUR-APU-2009-00722

PATIENT
  Age: 45 Year
  Sex: Female

DRUGS (3)
  1. LAMOTRIGINE [Suspect]
     Indication: BIPOLAR DISORDER
     Dosage: 200MG - DAILY - ORAL
     Route: 048
  2. TOPIRAMATE [Concomitant]
  3. BUPROPION HCL [Concomitant]

REACTIONS (6)
  - ARTHRALGIA [None]
  - LIVEDO RETICULARIS [None]
  - MALAISE [None]
  - RASH GENERALISED [None]
  - RAYNAUD'S PHENOMENON [None]
  - SJOGREN'S SYNDROME [None]
